FAERS Safety Report 6162185-9 (Version None)
Quarter: 2009Q2

REPORT INFORMATION
  Report Type: 
  Country: None (occurrence: None)
  Receive Date: 20090421
  Receipt Date: 20090416
  Transmission Date: 20091009
  Serious: Yes (Other)
  Sender: FDA-Public Use
  Company Number: US-JNJFOC-20090404334

PATIENT
  Age: 58 Year
  Sex: Male
  Weight: 79.38 kg

DRUGS (6)
  1. IMODIUM A-D [Suspect]
     Route: 048
  2. IMODIUM A-D [Suspect]
     Indication: DIARRHOEA
     Dosage: 4-5 TABLESPOONS, 3-4 TIMES A DAY FOR 3 DAYS
     Route: 048
  3. LOMOTIL [Concomitant]
     Indication: DIARRHOEA
     Dosage: 4 DAYS
     Route: 065
  4. KAOPECTATE [Concomitant]
     Indication: DIARRHOEA
     Dosage: COUPLE OF DAYS
     Route: 065
  5. UNSPECIFIED HEART MEDICATIONS [Concomitant]
     Indication: CARDIAC DISORDER
     Route: 065
  6. ANTIDIARRHEAL [Concomitant]
     Indication: DIARRHOEA
     Route: 065

REACTIONS (6)
  - ABDOMINAL DISTENSION [None]
  - ABDOMINAL PAIN [None]
  - APPETITE DISORDER [None]
  - DRUG INEFFECTIVE [None]
  - FAECES DISCOLOURED [None]
  - OVERDOSE [None]
